FAERS Safety Report 15662455 (Version 2)
Quarter: 2018Q4

REPORT INFORMATION
  Report Type: Spontaneous
  Country: AU (occurrence: AU)
  Receive Date: 20181128
  Receipt Date: 20181205
  Transmission Date: 20190205
  Serious: Yes (Hospitalization)
  Sender: FDA-Public Use
  Company Number: AU-GW PHARMA-201802AUGW0077

PATIENT

DRUGS (5)
  1. LEVETIRACETAM. [Concomitant]
     Active Substance: LEVETIRACETAM
     Indication: EARLY INFANTILE EPILEPTIC ENCEPHALOPATHY WITH BURST-SUPPRESSION
     Dosage: 360 MILLIGRAM, QD
     Route: 065
  2. PREDNISOLONE. [Concomitant]
     Active Substance: PREDNISOLONE
     Indication: PRODUCT USED FOR UNKNOWN INDICATION
     Dosage: WEANING
     Route: 065
  3. EPIDIOLEX [Suspect]
     Active Substance: CANNABIDIOL
     Indication: EARLY INFANTILE EPILEPTIC ENCEPHALOPATHY WITH BURST-SUPPRESSION
     Dosage: 24 MG/KG, 223 MILLIGRAM, QD
     Route: 048
     Dates: start: 20170628
  4. CLOBAZAM. [Concomitant]
     Active Substance: CLOBAZAM
     Indication: EARLY INFANTILE EPILEPTIC ENCEPHALOPATHY WITH BURST-SUPPRESSION
     Dosage: 2.5 MILLIGRAM, BID
     Route: 048
     Dates: end: 20171211
  5. VIGABATRIN. [Concomitant]
     Active Substance: VIGABATRIN
     Indication: EARLY INFANTILE EPILEPTIC ENCEPHALOPATHY WITH BURST-SUPPRESSION
     Dosage: 200 MILLIGRAM, QD
     Route: 065

REACTIONS (4)
  - Seizure [Recovered/Resolved]
  - Urosepsis [Recovered/Resolved]
  - Hyponatraemia [Recovered/Resolved]
  - Hypoxia [Recovered/Resolved]

NARRATIVE: CASE EVENT DATE: 20171207
